FAERS Safety Report 4339895-9 (Version None)
Quarter: 2004Q2

REPORT INFORMATION
  Report Type: 
  Country: None (occurrence: None)
  Receive Date: 20040412
  Receipt Date: 20040329
  Transmission Date: 20050107
  Serious: Yes (Disabling)
  Sender: FDA-Public Use
  Company Number: 2004AC00057

PATIENT
  Age: 27 Year
  Sex: Female

DRUGS (5)
  1. ROPIVACAINE [Suspect]
     Indication: ANAESTHESIA
     Dosage: 10 ML ED
     Route: 008
  2. ROPIVACAINE [Suspect]
     Indication: ANAESTHESIA
     Dosage: 15 ML ED
     Route: 008
  3. LIDOCAINE 1% [Suspect]
     Indication: ANAESTHESIA
     Dosage: 3 ML
  4. SUFENTANIL [Suspect]
     Indication: ANAESTHESIA
     Dosage: 10 UG ED
     Route: 008
  5. SUFENTANIL [Suspect]
     Indication: ANAESTHESIA
     Dosage: 6 UG ED
     Route: 008

REACTIONS (5)
  - ANAESTHETIC COMPLICATION NEUROLOGICAL [None]
  - COMPLICATIONS OF MATERNAL EXPOSURE TO THERAPEUTIC DRUGS [None]
  - CONDITION AGGRAVATED [None]
  - GUILLAIN-BARRE SYNDROME [None]
  - NEUROTOXICITY [None]
